FAERS Safety Report 19837012 (Version 1)
Quarter: 2021Q3

REPORT INFORMATION
  Report Type: Report from Study
  Country: AU (occurrence: AU)
  Receive Date: 20210914
  Receipt Date: 20210914
  Transmission Date: 20211014
  Serious: Yes (Other)
  Sender: FDA-Public Use
  Company Number: NVSC2021AU207108

PATIENT
  Sex: Female

DRUGS (1)
  1. COSENTYX [Suspect]
     Active Substance: SECUKINUMAB
     Indication: PSORIASIS
     Dosage: UNK, QW3 (ONCE EVERY THREE WEEKS)
     Route: 058
     Dates: start: 20191018

REACTIONS (2)
  - Brain neoplasm [Unknown]
  - Inappropriate schedule of product administration [Unknown]
